FAERS Safety Report 5383612-0 (Version None)
Quarter: 2007Q3

REPORT INFORMATION
  Report Type: 
  Country: None (occurrence: None)
  Receive Date: 20070706
  Receipt Date: 20070704
  Transmission Date: 20080115
  Serious: Yes (Hospitalization)
  Sender: FDA-Public Use
  Company Number: 6034919

PATIENT
  Age: 50 Year
  Sex: Female

DRUGS (6)
  1. AOTAL (TABLET) (ACAMPROSATE CALCIUM) [Suspect]
     Indication: DRUG USE FOR UNKNOWN INDICATION
     Dosage: 6 DOSAGE ORAL (6 DOSAGE FORMS, 1 D)
     Route: 048
  2. BISOPROLOL FUMARATE [Suspect]
     Indication: DRUG USE FOR UNKNOWN INDICATION
     Dosage: 10 MG (10 MG, 1 D) ORAL
     Route: 048
  3. MEPRONIZINE(MEPROBAMATE, ACEPROMETAZINE) [Suspect]
     Indication: DRUG USE FOR UNKNOWN INDICATION
     Dosage: 1 DOSAGE FORMS (1 DOSAGE FORMS, 1D) ORAL
     Route: 048
  4. ASPIRIN [Suspect]
     Indication: DRUG USE FOR UNKNOWN INDICATION
     Dosage: 160 MG (160 MG, 1D) ORAL
     Route: 048
     Dates: end: 20070303
  5. AMLOR (AMLODOPINE BESILATE) [Suspect]
     Dosage: 10 MG (10 MG, 1 D), ORAL
     Route: 048
  6. PRAVASTATIN [Suspect]
     Indication: DRUG USE FOR UNKNOWN INDICATION
     Dosage: 20 MG (20 MG, 1 D), ORAL
     Route: 048

REACTIONS (7)
  - APATHY [None]
  - FALL [None]
  - HAEMOGLOBIN DECREASED [None]
  - ISCHAEMIC STROKE [None]
  - MELAENA [None]
  - SUBARACHNOID HAEMORRHAGE [None]
  - SUBDURAL HAEMATOMA [None]
